FAERS Safety Report 18087425 (Version 1)
Quarter: 2020Q3

REPORT INFORMATION
  Report Type: Spontaneous
  Country: HR (occurrence: HR)
  Receive Date: 20200729
  Receipt Date: 20200729
  Transmission Date: 20201103
  Serious: Yes (Other)
  Sender: FDA-Public Use
  Company Number: HR-ROCHE-2650224

PATIENT
  Age: 20 Year
  Sex: Male

DRUGS (4)
  1. DORETA [Suspect]
     Active Substance: ACETAMINOPHEN\TRAMADOL HYDROCHLORIDE
     Indication: PRODUCT USED FOR UNKNOWN INDICATION
     Dosage: DF = 1 TABLET?6 TBL DORETA
     Route: 048
     Dates: start: 20200415, end: 20200415
  2. RIVOTRIL [Suspect]
     Active Substance: CLONAZEPAM
     Indication: PRODUCT USED FOR UNKNOWN INDICATION
     Dosage: DF = 1 BOTTLE?DRANK 3 BOTTLES
     Route: 048
     Dates: start: 20200415, end: 20200415
  3. PROPRANOLOL HYDROCHLORIDE. [Suspect]
     Active Substance: PROPRANOLOL HYDROCHLORIDE
     Indication: PRODUCT USED FOR UNKNOWN INDICATION
     Dosage: A 40 MG, A HANDFUL OF TABLETS (10 TBL)
     Route: 048
     Dates: start: 20200415, end: 20200415
  4. KVENTIAX [Suspect]
     Active Substance: QUETIAPINE FUMARATE
     Indication: PRODUCT USED FOR UNKNOWN INDICATION
     Dosage: A TOTAL OF 2.5 G
     Route: 048
     Dates: start: 20200415, end: 20200415

REACTIONS (3)
  - Intentional overdose [Unknown]
  - Somnolence [Unknown]
  - Suicide attempt [Unknown]

NARRATIVE: CASE EVENT DATE: 20200415
